FAERS Safety Report 10268565 (Version 2)
Quarter: 2014Q3

REPORT INFORMATION
  Report Type: Spontaneous
  Country: US (occurrence: US)
  Receive Date: 20140630
  Receipt Date: 20140911
  Transmission Date: 20150326
  Serious: Yes (Death)
  Sender: FDA-Public Use
  Company Number: US-PFIZER INC-2014177305

PATIENT
  Age: 66 Year
  Sex: Male

DRUGS (6)
  1. MORPHINE SULFATE ER [Concomitant]
     Active Substance: MORPHINE SULFATE
  2. IMODIUM A-D [Concomitant]
     Active Substance: LOPERAMIDE HYDROCHLORIDE
  3. HYDROCORTISON [Concomitant]
     Active Substance: HYDROCORTISONE
  4. ALBUTEROL SULFATE. [Concomitant]
     Active Substance: ALBUTEROL SULFATE
  5. SUTENT [Suspect]
     Active Substance: SUNITINIB MALATE
     Indication: RENAL CANCER
     Dosage: 25 MG, UNK
     Dates: start: 20140430
  6. ONDANSETRON HYDROCHLORIDE. [Concomitant]
     Active Substance: ONDANSETRON HYDROCHLORIDE

REACTIONS (1)
  - Death [Fatal]

NARRATIVE: CASE EVENT DATE: 20140624
